FAERS Safety Report 16400170 (Version 1)
Quarter: 2019Q2

REPORT INFORMATION
  Report Type: Spontaneous
  Country: US (occurrence: US)
  Receive Date: 20190606
  Receipt Date: 20190606
  Transmission Date: 20190711
  Serious: No
  Sender: FDA-Public Use
  Company Number: US-ALLERGAN-1913963US

PATIENT
  Age: 23 Year
  Sex: Female
  Weight: 63.49 kg

DRUGS (2)
  1. KYBELLA [Suspect]
     Active Substance: DEOXYCHOLIC ACID
     Indication: PRODUCT USED FOR UNKNOWN INDICATION
     Dosage: ACTUAL: 2 VIALS
     Route: 058
     Dates: start: 20190307, end: 20190307
  2. ANTIBIOTICS [Concomitant]
     Active Substance: UNSPECIFIED INGREDIENT
     Indication: LIPOSUCTION
     Dosage: UNK
     Route: 048
     Dates: start: 201903

REACTIONS (4)
  - Paraesthesia [Not Recovered/Not Resolved]
  - Nerve injury [Not Recovered/Not Resolved]
  - Facial paresis [Recovering/Resolving]
  - Muscle twitching [Not Recovered/Not Resolved]

NARRATIVE: CASE EVENT DATE: 20190307
